APPROVED DRUG PRODUCT: TRECATOR
Active Ingredient: ETHIONAMIDE
Strength: 250MG
Dosage Form/Route: TABLET;ORAL
Application: N013026 | Product #002
Applicant: WYETH PHARMACEUTICALS LLC
Approved: Approved Prior to Jan 1, 1982 | RLD: Yes | RS: No | Type: DISCN